APPROVED DRUG PRODUCT: CAPECITABINE
Active Ingredient: CAPECITABINE
Strength: 500MG
Dosage Form/Route: TABLET;ORAL
Application: A204668 | Product #002
Applicant: SUN PHARMACEUTICAL INDUSTRIES LTD
Approved: Jun 21, 2019 | RLD: No | RS: No | Type: DISCN